FAERS Safety Report 25493175 (Version 1)
Quarter: 2025Q2

REPORT INFORMATION
  Report Type: Spontaneous
  Country: US (occurrence: US)
  Receive Date: 20250630
  Receipt Date: 20250630
  Transmission Date: 20250716
  Serious: No
  Sender: RANBAXY
  Company Number: US-MIMS-SUN-2025-USA-53014

PATIENT
  Sex: Male

DRUGS (1)
  1. ESOMEPRAZOLE [Suspect]
     Active Substance: ESOMEPRAZOLE
     Indication: Dyspepsia
     Dosage: 20 MILLIGRAM, OD
     Route: 048
     Dates: start: 20250331

REACTIONS (2)
  - Poor quality product administered [Unknown]
  - Product deposit [Unknown]
